FAERS Safety Report 20068010 (Version 3)
Quarter: 2025Q3

REPORT INFORMATION
  Report Type: Spontaneous
  Country: EU (occurrence: EU)
  Receive Date: 20211115
  Receipt Date: 20250915
  Transmission Date: 20251021
  Serious: Yes (Life-Threatening, Other)
  Sender: BAUSCH AND LOMB
  Company Number: EU-JNJFOC-20211056880

PATIENT
  Age: 36 Year
  Sex: Male

DRUGS (10)
  1. DEXAMETHASONE [Suspect]
     Active Substance: DEXAMETHASONE
     Indication: Plasma cell myeloma
     Dosage: 2 WEEKS/CYCLE
     Route: 065
     Dates: end: 20190801
  2. DEXAMETHASONE [Suspect]
     Active Substance: DEXAMETHASONE
     Route: 065
  3. MELPHALAN [Suspect]
     Active Substance: MELPHALAN
     Indication: Plasma cell myeloma
     Dosage: 1 WEEKS/CYCLE
     Route: 065
     Dates: end: 20190801
  4. MELPHALAN [Suspect]
     Active Substance: MELPHALAN
     Route: 065
  5. THALIDOMIDE [Suspect]
     Active Substance: THALIDOMIDE
     Indication: Plasma cell myeloma
     Route: 065
     Dates: end: 20190801
  6. THALIDOMIDE [Suspect]
     Active Substance: THALIDOMIDE
     Route: 065
  7. BORTEZOMIB [Suspect]
     Active Substance: BORTEZOMIB
     Indication: Plasma cell myeloma
     Dosage: 2 WEEKS/CYCLE
     Route: 065
     Dates: end: 20190801
  8. BORTEZOMIB [Suspect]
     Active Substance: BORTEZOMIB
     Route: 065
  9. LENALIDOMIDE [Suspect]
     Active Substance: LENALIDOMIDE
     Indication: Plasma cell myeloma
     Dosage: 15 MG/DOSE 7 DOSES/WEEK 3 WEEKS/CYCLE
     Route: 065
     Dates: end: 20190801
  10. LENALIDOMIDE [Suspect]
     Active Substance: LENALIDOMIDE
     Route: 065

REACTIONS (2)
  - Neutropenia [Unknown]
  - Intentional product use issue [Unknown]
